FAERS Safety Report 10154552 (Version 3)
Quarter: 2014Q3

REPORT INFORMATION
  Report Type: Spontaneous
  Country: US (occurrence: US)
  Receive Date: 20140506
  Receipt Date: 20140716
  Transmission Date: 20150326
  Serious: No
  Sender: FDA-Public Use
  Company Number: US-PFIZER INC-2014120941

PATIENT
  Age: 25 Year
  Sex: Female

DRUGS (3)
  1. SOMAVERT [Suspect]
     Active Substance: PEGVISOMANT
     Indication: ACROMEGALY
     Dosage: 20 MG, DAILY
     Route: 058
  2. NECON [Concomitant]
     Active Substance: ETHINYL ESTRADIOL\NORETHINDRONE
     Dosage: UNK
  3. EFFEXOR [Concomitant]
     Active Substance: VENLAFAXINE HYDROCHLORIDE
     Dosage: 150 MG, DAILY

REACTIONS (6)
  - Arthralgia [Unknown]
  - Headache [Unknown]
  - Drug ineffective [Unknown]
  - Joint swelling [Unknown]
  - Fatigue [Unknown]
  - Visual impairment [Unknown]

NARRATIVE: CASE EVENT DATE: 20140401
